FAERS Safety Report 23172921 (Version 2)
Quarter: 2023Q4

REPORT INFORMATION
  Report Type: Spontaneous
  Country: US (occurrence: US)
  Receive Date: 20231110
  Receipt Date: 20231122
  Transmission Date: 20240110
  Serious: Yes (Hospitalization)
  Sender: FDA-Public Use
  Company Number: US-Eisai-EC-2023-152550

PATIENT
  Age: 63 Year
  Sex: Female

DRUGS (3)
  1. LEQEMBI [Suspect]
     Active Substance: LECANEMAB-IRMB
     Indication: Product used for unknown indication
     Dosage: DOSE UNKNOWN
     Route: 042
     Dates: start: 20231020, end: 20231020
  2. DONEPEZIL [Concomitant]
     Active Substance: DONEPEZIL
     Indication: Product used for unknown indication
     Dosage: DOSE AND FREQUENCY UNKNOWN
  3. VALSARTAN [Concomitant]
     Active Substance: VALSARTAN
     Indication: Hypertension
     Dosage: DOSE AND FREQUENCY UNKNOWN

REACTIONS (1)
  - Atrioventricular block [Recovered/Resolved]

NARRATIVE: CASE EVENT DATE: 20231024
